FAERS Safety Report 23310981 (Version 1)
Quarter: 2023Q4

REPORT INFORMATION
  Report Type: Spontaneous
  Country: GB (occurrence: GB)
  Receive Date: 20231218
  Receipt Date: 20231218
  Transmission Date: 20240109
  Serious: No
  Sender: FDA-Public Use
  Company Number: None

PATIENT
  Age: 16 Year
  Sex: Male
  Weight: 74.5 kg

DRUGS (12)
  1. MYCOPHENOLATE MOFETIL [Suspect]
     Active Substance: MYCOPHENOLATE MOFETIL
     Indication: Dermatomyositis
     Dosage: 250 MILLIGRAM
     Route: 065
  2. MYCOPHENOLATE MOFETIL [Suspect]
     Active Substance: MYCOPHENOLATE MOFETIL
     Dosage: 1 GRAM, BID (EVERY 12 HOUR)
     Route: 065
  3. MYCOPHENOLATE MOFETIL [Suspect]
     Active Substance: MYCOPHENOLATE MOFETIL
     Dosage: UNK
     Route: 065
  4. CYCLOPHOSPHAMIDE [Concomitant]
     Active Substance: CYCLOPHOSPHAMIDE
     Indication: Dermatomyositis
     Dosage: 1000 MILLIGRAM (TWO DOSES)
     Route: 065
  5. CYCLOPHOSPHAMIDE [Concomitant]
     Active Substance: CYCLOPHOSPHAMIDE
     Dosage: 800 MILLIGRAM (FOUR DOSES)
     Route: 065
  6. Intravenous immunoglobulins (IVIgs) [Concomitant]
     Indication: Dysphagia
     Dosage: 140 GRAM OVER 5 DAYS
     Route: 042
  7. Intravenous immunoglobulins (IVIgs) [Concomitant]
     Indication: Dyspnoea
  8. Intravenous immunoglobulins (IVIgs) [Concomitant]
     Indication: Asthenia
  9. Intravenous immunoglobulins (IVIgs) [Concomitant]
     Indication: Blood creatine phosphokinase increased
  10. METHYLPREDNISOLONE [Concomitant]
     Active Substance: METHYLPREDNISOLONE
     Indication: Dermatomyositis
     Dosage: 1 GRAM (3 DAY COURSE OF PULSE DOSE)
     Route: 042
  11. PREDNISOLONE [Concomitant]
     Active Substance: PREDNISOLONE
     Indication: Dermatomyositis
     Dosage: 60 MILLIGRAM
     Route: 048
  12. PREDNISOLONE [Concomitant]
     Active Substance: PREDNISOLONE
     Dosage: 13 MILLIGRAM (REDUCED)
     Route: 065

REACTIONS (1)
  - Lymphocyte count decreased [Unknown]
